FAERS Safety Report 9531495 (Version 1)
Quarter: 2013Q3

REPORT INFORMATION
  Report Type: Spontaneous
  Country: US (occurrence: None)
  Receive Date: 20130916
  Receipt Date: 20130916
  Transmission Date: 20140515
  Serious: No
  Sender: FDA-Public Use
  Company Number: None

PATIENT
  Age: 27 Year
  Sex: Male
  Weight: 72.58 kg

DRUGS (1)
  1. PROPACIA [Suspect]
     Indication: ANDROGENETIC ALOPECIA
     Dosage: 1/2 PILL ONCE DAILY TAKEN BY MOUTH

REACTIONS (9)
  - Cognitive disorder [None]
  - Hyperhidrosis [None]
  - Libido decreased [None]
  - Arthralgia [None]
  - Pain in extremity [None]
  - Arthralgia [None]
  - Varicocele [None]
  - Thyroid neoplasm [None]
  - Prostatitis [None]
